FAERS Safety Report 7207256-0 (Version None)
Quarter: 2010Q4

REPORT INFORMATION
  Report Type: 
  Country: None (occurrence: None)
  Receive Date: 20101221
  Receipt Date: 20101215
  Transmission Date: 20110411
  Serious: Yes (Death)
  Sender: FDA-Public Use
  Company Number: 2010US005066

PATIENT
  Age: 52 Year
  Sex: Male

DRUGS (6)
  1. PROGRAF [Suspect]
     Indication: COLITIS
  2. IPILIMUMAB (IPILIMUMAB) [Suspect]
     Indication: COLITIS
     Dosage: 1 DF, TOTAL DOSE,
  3. CYTOTOXIC CHEMOTHERAPY () [Suspect]
     Indication: PROSTATE CANCER
  4. PREDNISONE TAB [Suspect]
     Indication: COLITIS
     Dosage: 2 MG/KG, UID/QD,; 1.5 MG/KG, UID/QD,; 0.5 MG/KG, UID/QD,
  5. INFLIXIMAB (INFLIXIMAB) [Suspect]
     Indication: COLITIS
     Dosage: 3 DF,
  6. SIROLIMUS [Suspect]
     Indication: COLITIS

REACTIONS (1)
  - ASPERGILLOSIS [None]
